FAERS Safety Report 22630609 (Version 1)
Quarter: 2023Q2

REPORT INFORMATION
  Report Type: Spontaneous
  Country: DE (occurrence: DE)
  Receive Date: 20230621
  Receipt Date: 20230621
  Transmission Date: 20230721
  Serious: Yes (Other)
  Sender: FDA-Public Use
  Company Number: DE-BRISTOL-MYERS SQUIBB COMPANY-2023-085240

PATIENT
  Age: 75 Year

DRUGS (6)
  1. NIVOLUMAB [Suspect]
     Active Substance: NIVOLUMAB
     Indication: Metastatic malignant melanoma
     Dates: start: 201510
  2. IPILIMUMAB [Suspect]
     Active Substance: IPILIMUMAB
     Indication: Metastatic malignant melanoma
     Dates: start: 201510
  3. POLIDOCANOL [Concomitant]
     Active Substance: POLIDOCANOL
     Indication: Product used for unknown indication
  4. CLOBETASOL [Concomitant]
     Active Substance: CLOBETASOL
     Indication: Product used for unknown indication
  5. MINOCYCLINE [Concomitant]
     Active Substance: MINOCYCLINE HYDROCHLORIDE
     Indication: Product used for unknown indication
     Dosage: DOSE- 2*100MG
  6. DAPSONE [Concomitant]
     Active Substance: DAPSONE
     Indication: Product used for unknown indication
     Dosage: DOSE- 2*50MG/DAY

REACTIONS (6)
  - Rash papular [Unknown]
  - Drug eruption [Unknown]
  - Pemphigus [Unknown]
  - Pemphigoid [Unknown]
  - Systemic lupus erythematosus [Unknown]
  - Psoriasis [Unknown]

NARRATIVE: CASE EVENT DATE: 20170301
